FAERS Safety Report 22060887 (Version 1)
Quarter: 2023Q1

REPORT INFORMATION
  Report Type: Spontaneous
  Country: US (occurrence: US)
  Receive Date: 20230303
  Receipt Date: 20230303
  Transmission Date: 20230418
  Serious: No
  Sender: FDA-Public Use
  Company Number: US-EPIHEALTH-2022-US-030217

PATIENT
  Age: 69 Year
  Sex: Female
  Weight: 63.5 kg

DRUGS (2)
  1. RHOFADE [Suspect]
     Active Substance: OXYMETAZOLINE HYDROCHLORIDE
     Indication: Product used for unknown indication
     Dosage: APPLIED TO FACE ONCE DAILY
     Route: 061
     Dates: start: 20221226
  2. LISINOPRIL [Concomitant]
     Active Substance: LISINOPRIL

REACTIONS (2)
  - Application site erythema [Unknown]
  - Application site irritation [Unknown]

NARRATIVE: CASE EVENT DATE: 20221226
